FAERS Safety Report 15785373 (Version 1)
Quarter: 2018Q4

REPORT INFORMATION
  Report Type: Spontaneous
  Country: US (occurrence: US)
  Receive Date: 20181228
  Receipt Date: 20181228
  Transmission Date: 20190205
  Serious: No
  Sender: FDA-Public Use
  Company Number: None

PATIENT

DRUGS (2)
  1. LEUCOVORIN CALCIUM. [Suspect]
     Active Substance: LEUCOVORIN CALCIUM
     Dosage: ?          OTHER ROUTE:INTRAVENOUS OR IM?
  2. ETOPOSIDE. [Suspect]
     Active Substance: ETOPOSIDE
     Dosage: ?          OTHER FREQUENCY:MULTIPLE DOSE;?
     Route: 042

REACTIONS (4)
  - Product packaging confusion [None]
  - Product label confusion [None]
  - Product appearance confusion [None]
  - Product label issue [None]
